FAERS Safety Report 5109733-5 (Version None)
Quarter: 2006Q3

REPORT INFORMATION
  Report Type: 
  Country: None (occurrence: None)
  Receive Date: 20060918
  Receipt Date: 20060906
  Transmission Date: 20061208
  Serious: Yes (Hospitalization)
  Sender: FDA-Public Use
  Company Number: 2006BI012714

PATIENT
  Age: 47 Year
  Sex: Male
  Weight: 72 kg

DRUGS (6)
  1. NATALIZUMAB ( NATALIZUMAB) [Suspect]
     Indication: MULTIPLE SCLEROSIS
     Dosage: 300 MG; QM; IV
     Route: 042
     Dates: start: 20060701
  2. CITALOPRAM HYDROBROMIDE [Concomitant]
  3. BACLOFEN [Concomitant]
  4. EUNERPAN [Concomitant]
  5. OLANZAPINE [Concomitant]
  6. NATRIUMVALPROAT [Concomitant]

REACTIONS (1)
  - DEEP VEIN THROMBOSIS [None]
